FAERS Safety Report 6090368-5 (Version None)
Quarter: 2009Q1

REPORT INFORMATION
  Report Type: 
  Country: None (occurrence: None)
  Receive Date: 20090220
  Receipt Date: 20090213
  Transmission Date: 20090719
  Serious: Yes (Other)
  Sender: FDA-Public Use
  Company Number: 6045331

PATIENT
  Age: 52 Year
  Sex: Male

DRUGS (2)
  1. BISOPROLOL FUMARATE [Suspect]
     Indication: HYPERTENSION
     Dosage: 2.5 MG (2.5 MG, 1 IN 1 D) ORAL
     Route: 048
     Dates: start: 20061127, end: 20080801
  2. PREVISCAN (FLUINDIONE) [Concomitant]

REACTIONS (5)
  - AEROPHAGIA [None]
  - CROHN'S DISEASE [None]
  - DIARRHOEA [None]
  - FLATULENCE [None]
  - LARGE INTESTINAL ULCER [None]
